FAERS Safety Report 13775074 (Version 1)
Quarter: 2017Q3

REPORT INFORMATION
  Report Type: Spontaneous
  Country: PR (occurrence: PR)
  Receive Date: 20170720
  Receipt Date: 20170720
  Transmission Date: 20171127
  Serious: Yes (Hospitalization, Other)
  Sender: FDA-Public Use
  Company Number: PR-MALLINCKRODT-T201702869

PATIENT
  Sex: Female

DRUGS (1)
  1. H.P. ACTHAR [Suspect]
     Active Substance: CORTICOTROPIN
     Indication: NEPHROTIC SYNDROME
     Dosage: 80 UNITS, TWICE WEEKLY
     Route: 058
     Dates: start: 20170419

REACTIONS (6)
  - Hypertension [Unknown]
  - Peripheral swelling [Unknown]
  - Diverticulitis [Unknown]
  - Rectal haemorrhage [Unknown]
  - Swelling face [Unknown]
  - Drug dose omission [Unknown]
